FAERS Safety Report 21232509 (Version 1)
Quarter: 2022Q3

REPORT INFORMATION
  Report Type: Report from Study
  Country: AU (occurrence: None)
  Receive Date: 20220819
  Receipt Date: 20220819
  Transmission Date: 20221027
  Serious: No
  Sender: FDA-Public Use
  Company Number: AU-IQVIA-20052700801041001_10

PATIENT
  Age: 49 Year
  Sex: Female
  Weight: 99 kg

DRUGS (1)
  1. EVOBRUTINIB [Suspect]
     Active Substance: EVOBRUTINIB
     Indication: Relapsing multiple sclerosis
     Route: 048
     Dates: start: 20201118, end: 20210111

REACTIONS (1)
  - Liver function test increased [Recovered/Resolved]

NARRATIVE: CASE EVENT DATE: 20210106
